FAERS Safety Report 6599794-9 (Version None)
Quarter: 2010Q1

REPORT INFORMATION
  Report Type: 
  Country: None (occurrence: None)
  Receive Date: 20100212
  Receipt Date: 20090907
  Transmission Date: 20100710
  Serious: No
  Sender: FDA-Public Use
  Company Number: 2009-00570

PATIENT
  Age: 51 Year
  Sex: Male
  Weight: 92.9874 kg

DRUGS (2)
  1. ZICAM COLD REMEDY GEL SWABS [Suspect]
     Dosage: 2-3X/DAY, 10-15 SWABS
     Dates: start: 20081201
  2. MOTRIN [Concomitant]

REACTIONS (3)
  - ANOSMIA [None]
  - NASAL CONGESTION [None]
  - SNORING [None]
